FAERS Safety Report 8772525 (Version 1)
Quarter: 2012Q4

REPORT INFORMATION
  Report Type: 
  Country: GB (occurrence: GB)
  Receive Date: 20120905
  Receipt Date: 20120905
  Transmission Date: 20130627
  Serious: Yes (Other)
  Sender: FDA-Public Use
  Company Number: GB-PFIZER INC-2012212339

PATIENT
  Age: 64 Year
  Sex: Male
  Weight: 80 kg

DRUGS (2)
  1. VFEND [Suspect]
     Indication: ASPERGILLOSIS
     Dosage: 20 mg, 2x/day
     Route: 048
     Dates: start: 20120606, end: 20120713
  2. PENTASA [Concomitant]
     Indication: COLITIS ULCERATIVE
     Dosage: 1 g, 2x/day
     Route: 048
     Dates: start: 2007

REACTIONS (1)
  - Colitis ulcerative [Recovering/Resolving]
